FAERS Safety Report 9468663 (Version 2)
Quarter: 2013Q3

REPORT INFORMATION
  Report Type: Spontaneous
  Country: JP (occurrence: JP)
  Receive Date: 20130821
  Receipt Date: 20130917
  Transmission Date: 20140515
  Serious: Yes (Death)
  Sender: FDA-Public Use
  Company Number: JP-ROCHE-1264356

PATIENT
  Age: 58 Year
  Sex: Male
  Weight: 69 kg

DRUGS (8)
  1. MIRCERA [Suspect]
     Indication: NEPHROGENIC ANAEMIA
     Route: 058
     Dates: start: 20130809, end: 20130809
  2. ADALAT CR [Concomitant]
     Indication: HYPERTENSION
     Route: 065
  3. OLMETEC [Concomitant]
     Indication: HYPERTENSION
     Route: 065
  4. ZYLORIC [Concomitant]
     Indication: HYPERURICAEMIA
     Route: 065
  5. CALBLOCK [Concomitant]
     Indication: HYPERTENSION
     Route: 065
  6. MAGLAX [Concomitant]
     Indication: CONSTIPATION
     Route: 065
  7. TAKEPRON [Concomitant]
     Indication: GASTROOESOPHAGEAL REFLUX DISEASE
     Route: 065
  8. LIVALO [Concomitant]
     Indication: HYPERLIPIDAEMIA
     Route: 065

REACTIONS (1)
  - Myocardial infarction [Fatal]
